FAERS Safety Report 11857827 (Version 1)
Quarter: 2015Q4

REPORT INFORMATION
  Report Type: Spontaneous
  Country: US (occurrence: None)
  Receive Date: 20151221
  Receipt Date: 20151221
  Transmission Date: 20160305
  Serious: Yes (Life-Threatening, Hospitalization)
  Sender: FDA-Public Use
  Company Number: None

PATIENT
  Age: 64 Year
  Sex: Male

DRUGS (1)
  1. METHADONE [Suspect]
     Active Substance: METHADONE HYDROCHLORIDE
     Route: 048
     Dates: start: 20150910, end: 20150910

REACTIONS (5)
  - Respiratory alkalosis [None]
  - Respiratory depression [None]
  - Sedation [None]
  - Hypoxia [None]
  - Unresponsive to stimuli [None]

NARRATIVE: CASE EVENT DATE: 20150910
